FAERS Safety Report 4762208-5 (Version None)
Quarter: 2005Q3

REPORT INFORMATION
  Report Type: 
  Country: None (occurrence: None)
  Receive Date: 20050906
  Receipt Date: 20050906
  Transmission Date: 20060218
  Serious: Yes (Other)
  Sender: FDA-Public Use
  Company Number: None

PATIENT
  Age: 35 Year
  Sex: Male
  Weight: 68.0396 kg

DRUGS (3)
  1. NEXIUM [Suspect]
     Indication: GASTROOESOPHAGEAL REFLUX DISEASE
     Dosage: 1 QD PO
     Route: 048
     Dates: start: 20040301, end: 20040430
  2. NEXIUM [Suspect]
     Indication: DISEASE RECURRENCE
     Dosage: 1 QD PO
     Route: 048
     Dates: start: 20050815, end: 20050820
  3. NEXIUM [Suspect]
     Indication: GASTROOESOPHAGEAL REFLUX DISEASE
     Dosage: 1 QD PO
     Route: 048
     Dates: start: 20050815, end: 20050820

REACTIONS (10)
  - CONDITION AGGRAVATED [None]
  - DEHYDRATION [None]
  - DISTURBANCE IN ATTENTION [None]
  - GASTROINTESTINAL DISORDER [None]
  - IMPAIRED WORK ABILITY [None]
  - IMPATIENCE [None]
  - INSOMNIA [None]
  - IRRITABILITY [None]
  - MEMORY IMPAIRMENT [None]
  - VISION BLURRED [None]
